FAERS Safety Report 7732902-2 (Version None)
Quarter: 2011Q3

REPORT INFORMATION
  Report Type: 
  Country: None (occurrence: None)
  Receive Date: 20110901
  Receipt Date: 20110817
  Transmission Date: 20111222
  Serious: Yes (Hospitalization)
  Sender: FDA-Public Use
  Company Number: JP-006158

PATIENT
  Age: 31 Year
  Sex: Female

DRUGS (2)
  1. HCG (HCG) [Suspect]
     Indication: OVULATION INDUCTION
  2. MENOTROPINS [Suspect]
     Indication: OVULATION INDUCTION
     Dosage: 150-300 IU

REACTIONS (5)
  - PREGNANCY TEST POSITIVE [None]
  - UTERINE DILATION AND EVACUATION [None]
  - RENAL INFARCT [None]
  - CEREBRAL INFARCTION [None]
  - OVARIAN HYPERSTIMULATION SYNDROME [None]
